FAERS Safety Report 8246985-7 (Version None)
Quarter: 2012Q1

REPORT INFORMATION
  Report Type: 
  Country: None (occurrence: None)
  Receive Date: 20120327
  Receipt Date: 20120312
  Transmission Date: 20120608
  Serious: Yes (Hospitalization)
  Sender: FDA-Public Use
  Company Number: LTI2011A00183

PATIENT
  Age: 72 Year
  Sex: Male

DRUGS (7)
  1. ATENOLOL [Concomitant]
  2. METFORMIN HCL [Concomitant]
  3. RENITEC (ENALAPRIL) [Concomitant]
  4. ATORVASTATIN CALCIUM [Concomitant]
  5. ACTOS [Suspect]
     Indication: TYPE 2 DIABETES MELLITUS
     Route: 048
     Dates: start: 20060601, end: 20061201
  6. BUPRENORPHINE [Concomitant]
  7. KARDEGIC (ACETYLSALYICYLATE LYSINE) [Concomitant]

REACTIONS (1)
  - BLADDER CANCER [None]
